FAERS Safety Report 6005607-6 (Version None)
Quarter: 2008Q4

REPORT INFORMATION
  Report Type: 
  Country: None (occurrence: None)
  Receive Date: 20081204
  Receipt Date: 20081127
  Transmission Date: 20090506
  Serious: Yes (Hospitalization)
  Sender: FDA-Public Use
  Company Number: 200711976

PATIENT
  Age: 33 Year
  Sex: Female
  Weight: 66 kg

DRUGS (2)
  1. SANDOGLOBULIN [Suspect]
     Indication: MUSCULAR WEAKNESS
     Dosage: 24 G DAILY IV, IV
     Route: 042
     Dates: start: 20070525, end: 20070526
  2. SANDOGLOBULIN [Suspect]
     Indication: MUSCULAR WEAKNESS
     Dosage: 24 G DAILY IV, IV
     Route: 042
     Dates: start: 20070527, end: 20070527

REACTIONS (9)
  - ABDOMINAL PAIN [None]
  - BACTERIAL INFECTION [None]
  - BLOOD CULTURE POSITIVE [None]
  - CHILLS [None]
  - HEADACHE [None]
  - MUSCLE SPASMS [None]
  - NECK PAIN [None]
  - PYREXIA [None]
  - VOMITING [None]
